FAERS Safety Report 16936665 (Version 1)
Quarter: 2019Q4

REPORT INFORMATION
  Report Type: Spontaneous
  Country: SE (occurrence: SE)
  Receive Date: 20191018
  Receipt Date: 20191018
  Transmission Date: 20200122
  Serious: Yes (Hospitalization)
  Sender: FDA-Public Use
  Company Number: SE-PFIZER INC-2019447035

PATIENT
  Age: 21 Year
  Sex: Female

DRUGS (4)
  1. LERGIGAN [PROMETHAZINE HYDROCHLORIDE] [Suspect]
     Active Substance: PROMETHAZINE HYDROCHLORIDE
     Dosage: UNK
     Route: 048
     Dates: start: 20181130, end: 20181130
  2. GABAPENTIN. [Suspect]
     Active Substance: GABAPENTIN
     Dosage: 300 MG, UNK
     Route: 048
     Dates: start: 20181130, end: 20181130
  3. VOXRA [Suspect]
     Active Substance: BUPROPION HYDROCHLORIDE
     Dosage: 300 MG, UNK
     Dates: start: 20181130, end: 20181130
  4. QUETIAPINE. [Suspect]
     Active Substance: QUETIAPINE
     Dosage: 50 MG, UNK (50 MG WAS TAKEN TONIGHT, NOT THAT MANY)
     Route: 048
     Dates: start: 20181130, end: 20181130

REACTIONS (9)
  - Akathisia [Unknown]
  - Lethargy [Unknown]
  - Depressed level of consciousness [Unknown]
  - Hallucination [Unknown]
  - Intentional overdose [Unknown]
  - Mydriasis [Unknown]
  - Confusional state [Unknown]
  - Intentional self-injury [Unknown]
  - Paranoia [Unknown]

NARRATIVE: CASE EVENT DATE: 201811
